FAERS Safety Report 4650462-X (Version None)
Quarter: 2005Q2

REPORT INFORMATION
  Report Type: 
  Country: None (occurrence: None)
  Receive Date: 20050429
  Receipt Date: 20050422
  Transmission Date: 20051028
  Serious: Yes (Other)
  Sender: FDA-Public Use
  Company Number: 2005-01387

PATIENT
  Age: 7 Year
  Sex: Female

DRUGS (1)
  1. TRELSTAR DEPOT [Suspect]
     Indication: PRECOCIOUS PUBERTY
     Dosage: 3 MG Q  28 DAYS, INTRAMUSCULAR
     Route: 030
     Dates: start: 20050201

REACTIONS (1)
  - THROMBOCYTOPENIA [None]
